FAERS Safety Report 19106429 (Version 4)
Quarter: 2021Q4

REPORT INFORMATION
  Report Type: Spontaneous
  Country: FR (occurrence: FR)
  Receive Date: 20210408
  Receipt Date: 20211214
  Transmission Date: 20220303
  Serious: Yes (Other)
  Sender: FDA-Public Use
  Company Number: FR-GRUNENTHAL-2021-263301

PATIENT
  Age: 49 Year
  Sex: Female

DRUGS (2)
  1. TRAMADOL [Suspect]
     Active Substance: TRAMADOL
     Indication: Back pain
     Dosage: 3000 MILLIGRAM, ONCE A DAY
     Route: 048
     Dates: start: 2004
  2. TRAMADOL [Suspect]
     Active Substance: TRAMADOL
     Indication: Back pain
     Dosage: 6 DOSAGE FORM, ONCE A DAY
     Route: 065
     Dates: end: 2019

REACTIONS (8)
  - Cerebrovascular accident [Unknown]
  - Type 2 diabetes mellitus [Unknown]
  - Dependence [Recovered/Resolved]
  - Drug dependence [Recovered/Resolved]
  - Overdose [Recovered/Resolved]
  - Hypertension [Unknown]
  - Hypercholesterolaemia [Unknown]
  - Intentional product misuse [Unknown]

NARRATIVE: CASE EVENT DATE: 20180101
